FAERS Safety Report 25721101 (Version 3)
Quarter: 2025Q4

REPORT INFORMATION
  Report Type: Spontaneous
  Country: US (occurrence: US)
  Receive Date: 20250825
  Receipt Date: 20251218
  Transmission Date: 20260117
  Serious: Yes (Other)
  Sender: CSL BEHRING
  Company Number: US-BEH-2025216139

PATIENT
  Age: 54 Year
  Sex: Female

DRUGS (2)
  1. IDELVION [Suspect]
     Active Substance: COAGULATION FACTOR IX RECOMBINANT HUMAN
     Indication: Factor IX deficiency
     Dosage: 2000 IU, PRN (DAYS 5 AND 25 EVERY MONTH)
     Route: 042
     Dates: start: 201405
  2. IDELVION [Suspect]
     Active Substance: COAGULATION FACTOR IX RECOMBINANT HUMAN
     Indication: Factor IX deficiency
     Dosage: 2000 IU, PRN (DAYS 5 AND 25 EVERY MONTH)
     Route: 042
     Dates: start: 201405

REACTIONS (10)
  - Haemarthrosis [Unknown]
  - Arthralgia [Unknown]
  - Haemorrhage [Unknown]
  - Ear haemorrhage [Unknown]
  - Myalgia [Unknown]
  - Haemorrhage [Unknown]
  - Arthralgia [Unknown]
  - Arthralgia [Unknown]
  - Intentional product misuse [Unknown]
  - Product use issue [Unknown]

NARRATIVE: CASE EVENT DATE: 20250101
